FAERS Safety Report 26194578 (Version 1)
Quarter: 2025Q4

REPORT INFORMATION
  Report Type: Spontaneous
  Country: US (occurrence: US)
  Receive Date: 20251224
  Receipt Date: 20251224
  Transmission Date: 20260118
  Serious: Yes (Death, Life-Threatening, Hospitalization, Other)
  Sender: CIPLA
  Company Number: US-CIPLA (EU) LIMITED-2025US15670

PATIENT

DRUGS (1)
  1. AMLODIPINE [Suspect]
     Active Substance: AMLODIPINE BESYLATE
     Dosage: 1800 MILLIGRAM (180 TABLETS)
     Route: 048

REACTIONS (15)
  - Death [Fatal]
  - Multiple organ dysfunction syndrome [Unknown]
  - Pulmonary embolism [Unknown]
  - Retroperitoneal haematoma [Unknown]
  - Acute kidney injury [Unknown]
  - Intentional overdose [Unknown]
  - Atrioventricular block complete [Unknown]
  - Haemodynamic instability [Unknown]
  - Condition aggravated [Unknown]
  - Hypotension [Unknown]
  - Bradycardia [Unknown]
  - Respiratory distress [Unknown]
  - Pulmonary oedema [Unknown]
  - Sepsis [Unknown]
  - Suicide attempt [Unknown]
